FAERS Safety Report 5898419-5 (Version None)
Quarter: 2008Q3

REPORT INFORMATION
  Report Type: 
  Country: None (occurrence: None)
  Receive Date: 20080925
  Receipt Date: 20071024
  Transmission Date: 20090109
  Serious: No
  Sender: FDA-Public Use
  Company Number: A0690524A

PATIENT
  Sex: Female

DRUGS (3)
  1. WELLBUTRIN XL [Suspect]
     Indication: DEPRESSION
     Dosage: 150MG UNKNOWN
     Route: 048
     Dates: start: 20050101
  2. TOPAMAX [Concomitant]
  3. ZOLOFT [Concomitant]

REACTIONS (5)
  - ANGER [None]
  - DISSOCIATION [None]
  - MEMORY IMPAIRMENT [None]
  - PARANOIA [None]
  - WEIGHT DECREASED [None]
